FAERS Safety Report 25351152 (Version 1)
Quarter: 2025Q2

REPORT INFORMATION
  Report Type: Spontaneous
  Country: BR (occurrence: BR)
  Receive Date: 20250523
  Receipt Date: 20250523
  Transmission Date: 20250717
  Serious: Yes (Death, Other)
  Sender: SANDOZ
  Company Number: BR-002147023-NVSC2025BR082286

PATIENT
  Age: 87 Year
  Sex: Male

DRUGS (1)
  1. EXELON [Suspect]
     Active Substance: RIVASTIGMINE TARTRATE
     Indication: Dementia Alzheimer^s type
     Dosage: 13.3 MG, QD (1 PATCH A DAY AFTER BATHING)
     Route: 062

REACTIONS (2)
  - Cardiac failure [Fatal]
  - Pulmonary fibrosis [Fatal]
